FAERS Safety Report 7887767-5 (Version None)
Quarter: 2011Q4

REPORT INFORMATION
  Report Type: 
  Country: None (occurrence: None)
  Receive Date: 20111101
  Receipt Date: 20111025
  Transmission Date: 20120403
  Serious: Yes (Hospitalization)
  Sender: FDA-Public Use
  Company Number: 2011FR0321

PATIENT
  Sex: Female

DRUGS (1)
  1. ORFADIN [Suspect]
     Indication: TYROSINAEMIA
     Dosage: 1 MG/KG (40 MG, 2 IN 1 D), ORAL
     Route: 048
     Dates: start: 19950325

REACTIONS (6)
  - ECLAMPSIA [None]
  - HYPERTENSION [None]
  - TREATMENT NONCOMPLIANCE [None]
  - OBESITY [None]
  - DEATH OF RELATIVE [None]
  - EPILEPSY [None]
